FAERS Safety Report 8530909-9 (Version None)
Quarter: 2012Q3

REPORT INFORMATION
  Report Type: 
  Country: None (occurrence: None)
  Receive Date: 20120723
  Receipt Date: 20120711
  Transmission Date: 20120928
  Serious: Yes (Other)
  Sender: FDA-Public Use
  Company Number: JP-ROCHE-1088787

PATIENT
  Age: 8 Year
  Sex: Male

DRUGS (6)
  1. ACTEMRA [Suspect]
     Indication: HYPER IGD SYNDROME
     Dosage: DOSAGE IS UNCERTAIN.
     Route: 041
     Dates: start: 20090101
  2. CELLCEPT [Concomitant]
     Indication: HYPER IGD SYNDROME
     Dosage: DOSAGE IS UNCERTAIN.
     Route: 048
  3. TACROLIMUS [Concomitant]
     Indication: HYPER IGD SYNDROME
     Dosage: DOSAGE IS UNCERTAIN.
     Route: 048
  4. CYCLOSPORINE [Concomitant]
     Indication: HYPER IGD SYNDROME
     Dosage: DOSAGE IS UNCERTAIN.
     Route: 048
  5. PREDNISOLONE [Concomitant]
     Indication: HYPER IGD SYNDROME
     Dosage: DOSAGE IS UNCERTAIN.
     Route: 048
  6. METHOTREXATE [Concomitant]
     Indication: HYPER IGD SYNDROME
     Dosage: DOSAGE IS UNCERTAIN.
     Route: 048

REACTIONS (2)
  - ARTHRALGIA [None]
  - INTERSTITIAL LUNG DISEASE [None]
